FAERS Safety Report 10583590 (Version 1)
Quarter: 2014Q4

REPORT INFORMATION
  Report Type: Spontaneous
  Country: CN (occurrence: None)
  Receive Date: 20141112
  Receipt Date: 20141112
  Transmission Date: 20150529
  Serious: Yes (Hospitalization)
  Sender: FDA-Public Use
  Company Number: CN-DRAXIINC-000168

PATIENT
  Age: 52 Year
  Sex: Male

DRUGS (1)
  1. SODIUM IODIDE [Suspect]
     Active Substance: SODIUM IODIDE
     Indication: HYPERTHYROIDISM
     Dosage: 2 X 5MCI (5 WEEKS)
     Dates: start: 20120725, end: 20120902

REACTIONS (2)
  - Hepatotoxicity [None]
  - Drug ineffective [None]

NARRATIVE: CASE EVENT DATE: 20120711
